FAERS Safety Report 24736790 (Version 3)
Quarter: 2025Q1

REPORT INFORMATION
  Report Type: Report from Study
  Country: ZA (occurrence: ZA)
  Receive Date: 20241216
  Receipt Date: 20250101
  Transmission Date: 20250408
  Serious: No
  Sender: ROCHE
  Company Number: ZA-ROCHE-10000149549

PATIENT
  Age: 58 Year
  Sex: Female

DRUGS (1)
  1. OCREVUS [Suspect]
     Active Substance: OCRELIZUMAB
     Indication: Multiple sclerosis
     Dosage: MORE DOSAGE INFORMATION: THEREAFTER 600MG EVERY 6 MONTHS
     Route: 042
     Dates: start: 20241202

REACTIONS (3)
  - Headache [Recovered/Resolved]
  - Fatigue [Recovering/Resolving]
  - Influenza [Unknown]

NARRATIVE: CASE EVENT DATE: 20241202
